FAERS Safety Report 19716429 (Version 1)
Quarter: 2021Q3

REPORT INFORMATION
  Report Type: Report from Study
  Country: AU (occurrence: AU)
  Receive Date: 20210819
  Receipt Date: 20210819
  Transmission Date: 20211014
  Serious: Yes (Hospitalization)
  Sender: FDA-Public Use
  Company Number: AU-AMGEN-AUSCT2021126871

PATIENT
  Age: 38 Year
  Sex: Female
  Weight: 43.3 kg

DRUGS (81)
  1. BLINATUMOMAB [Suspect]
     Active Substance: BLINATUMOMAB
     Indication: ACUTE LYMPHOCYTIC LEUKAEMIA
     Dosage: UNK
     Route: 065
  2. DEXAMETHASONE. [Suspect]
     Active Substance: DEXAMETHASONE
     Dosage: UNK (TOTAL DOSE: 260 MG)
     Route: 042
     Dates: start: 20210722
  3. VINCRISTINE [Suspect]
     Active Substance: VINCRISTINE
     Indication: ACUTE LYMPHOCYTIC LEUKAEMIA
     Dosage: UNK (TOTAL DOSE: 6 MG)
     Route: 042
     Dates: start: 20210729
  4. VINCRISTINE [Suspect]
     Active Substance: VINCRISTINE
     Dosage: 2 MILLIGRAM
     Route: 042
  5. COLOXYL WITH SENNA [DOCUSATE SODIUM;SENNOSIDE A+B] [Concomitant]
     Active Substance: DOCUSATE SODIUM\SENNOSIDES A AND B
     Indication: CONSTIPATION
     Dosage: UNK UNK, BID (PRN)
     Dates: start: 20210213
  6. LIGNOCAIN [Concomitant]
     Dosage: 10 MILLILITER
     Dates: start: 20210428, end: 20210428
  7. PENTHROX [Concomitant]
     Active Substance: METHOXYFLURANE
     Indication: SEDATION
     Dosage: UNK
     Dates: start: 20210308, end: 20210308
  8. PENTHROX [Concomitant]
     Active Substance: METHOXYFLURANE
     Dosage: 3 MILLILITER
     Dates: start: 20210428, end: 20210428
  9. BISACODYL. [Concomitant]
     Active Substance: BISACODYL
     Indication: CONSTIPATION
     Dosage: UNK (3 SACHETS)
     Dates: start: 20210313, end: 20210313
  10. VANCOMYCIN [Concomitant]
     Active Substance: VANCOMYCIN
     Indication: CLOSTRIDIUM DIFFICILE INFECTION
     Dosage: 125 MILLIGRAM, QID
     Dates: start: 20210314, end: 20210327
  11. METOCLOPRAMIDE. [Concomitant]
     Active Substance: METOCLOPRAMIDE
     Indication: VOMITING
  12. TRAMADOL. [Concomitant]
     Active Substance: TRAMADOL
     Indication: PAIN
     Dosage: 50 MILLIGRAM, AS NECESSARY (4 HRS)
     Dates: start: 20210317, end: 20210324
  13. PEG/L?ASPARAGINASE [Suspect]
     Active Substance: PEGASPARGASE
     Indication: ACUTE LYMPHOCYTIC LEUKAEMIA
     Dosage: UNK (TOTAL DOSE: 1600 U)
     Route: 065
     Dates: start: 20210722
  14. PARACETAMOL [Concomitant]
     Active Substance: ACETAMINOPHEN
     Indication: STOMATITIS
     Dosage: UNK, AS NECESSARY (1G, 4G/24 HR)
     Dates: start: 20210202
  15. PARACETAMOL [Concomitant]
     Active Substance: ACETAMINOPHEN
     Indication: PAIN
     Dosage: 1 GRAM
     Dates: start: 20210815
  16. ALLOPURINOL. [Concomitant]
     Active Substance: ALLOPURINOL
     Indication: PROPHYLAXIS
     Dosage: 300 MILLIGRAM, QD
     Dates: start: 20210202, end: 20210210
  17. MOVICOL PLAIN [Concomitant]
     Active Substance: POLYETHYLENE GLYCOL 3350\POTASSIUM CHLORIDE\SODIUM BICARBONATE\SODIUM CHLORIDE
     Indication: CONSTIPATION
     Dosage: UNK UNK, BID (1 TO 2 PACKS)
     Dates: start: 20210213, end: 20210213
  18. OMEPRAZOLE. [Concomitant]
     Active Substance: OMEPRAZOLE
     Indication: PRODUCT USED FOR UNKNOWN INDICATION
     Dosage: 40 MILLIGRAM, QD
     Dates: start: 20210213, end: 20210226
  19. OMEPRAZOLE. [Concomitant]
     Active Substance: OMEPRAZOLE
     Indication: EPIGASTRIC DISCOMFORT
     Dosage: 20 MILLIGRAM, QD
     Dates: start: 20210222, end: 20210222
  20. LIGNOCAIN [Concomitant]
     Indication: LOCAL ANAESTHESIA
     Dosage: 5 MILLILITER
     Route: 058
     Dates: start: 20210215, end: 20210215
  21. LIGNOCAIN [Concomitant]
     Dosage: 10 MILLILITER
     Dates: start: 20210316, end: 20210316
  22. LIGNOCAIN [Concomitant]
     Dosage: 10 MILLILITER
     Dates: start: 20210505, end: 20210505
  23. FLEET ENEMA [Concomitant]
     Active Substance: SODIUM PHOSPHATE, DIBASIC\SODIUM PHOSPHATE, MONOBASIC
     Indication: CONSTIPATION
     Dosage: UNK
     Dates: start: 20210311, end: 20210311
  24. FILGRASTIM [Concomitant]
     Active Substance: FILGRASTIM
     Indication: PROPHYLAXIS
     Dosage: 300 MICROGRAM
     Dates: start: 20210312, end: 20210312
  25. TEMAZEPAM. [Concomitant]
     Active Substance: TEMAZEPAM
     Dosage: 10 MILLIGRAM, QD (PRN)
     Dates: start: 20210207
  26. MOVICOL PLAIN [Concomitant]
     Active Substance: POLYETHYLENE GLYCOL 3350\POTASSIUM CHLORIDE\SODIUM BICARBONATE\SODIUM CHLORIDE
     Dosage: UNK, TID (2 PACKS)
     Dates: start: 20210214, end: 20210218
  27. OLANZAPINE. [Concomitant]
     Active Substance: OLANZAPINE
     Indication: VOMITING
  28. GASTROGEL RANITIDINE [Concomitant]
     Indication: REFLUX GASTRITIS
     Dosage: 15 MILLILITER, TID (PRN)
     Dates: start: 20210213, end: 20210217
  29. GASTROGEL RANITIDINE [Concomitant]
     Dosage: 20 MILLILITER, QD
     Dates: start: 20210221, end: 20210221
  30. GASTROGEL RANITIDINE [Concomitant]
     Dosage: 20 MILLILITER
     Route: 048
     Dates: start: 20210428, end: 20210428
  31. PICOPREP [Concomitant]
     Active Substance: ANHYDROUS CITRIC ACID\MAGNESIUM OXIDE\SODIUM PICOSULFATE
     Dosage: UNK
     Dates: start: 20210310, end: 20210310
  32. LIGNOCAIN [Concomitant]
     Dosage: 10 MILLILITER
     Dates: start: 20210308, end: 20210308
  33. LIGNOCAIN [Concomitant]
     Dosage: 5 MILLILITER
     Dates: start: 20210413, end: 20210413
  34. HYOSCINE BUTYLBROMIDE [Concomitant]
     Active Substance: BUTYLSCOPOLAMINE BROMIDE
     Indication: ABDOMINAL PAIN
     Dosage: 10 MILLIGRAM, AS NECESSARY
     Dates: start: 20210313, end: 20210324
  35. DEXAMETHASONE. [Suspect]
     Active Substance: DEXAMETHASONE
     Dosage: 8 MILLIGRAM, QD
     Route: 048
     Dates: start: 20210623, end: 20210625
  36. PARACETAMOL [Concomitant]
     Active Substance: ACETAMINOPHEN
     Dosage: 1 GRAM
     Route: 048
     Dates: start: 20210428, end: 20210428
  37. ONDANSETRON [Concomitant]
     Active Substance: ONDANSETRON
     Indication: NAUSEA
     Dosage: UNK UNK, TID (4?8 MG)
     Dates: start: 20210202
  38. OMEPRAZOLE. [Concomitant]
     Active Substance: OMEPRAZOLE
     Dosage: UNK
     Dates: start: 20210227, end: 20210302
  39. OLANZAPINE. [Concomitant]
     Active Substance: OLANZAPINE
     Indication: NAUSEA
     Dosage: 5 MILLIGRAM, TID (PRN)
     Dates: start: 20210213
  40. CYCLIZINE [Concomitant]
     Active Substance: CYCLIZINE
     Dosage: 50 MILLIGRAM
     Dates: start: 20210604, end: 20210604
  41. PANTOPRAZOLE [Concomitant]
     Active Substance: PANTOPRAZOLE
     Dosage: 20 MILLIGRAM, BID
     Dates: start: 20210302, end: 20210303
  42. PENTAMIDINE [Concomitant]
     Active Substance: PENTAMIDINE
     Indication: PROPHYLAXIS
     Dosage: 300 MILLIGRAM, Q4WK
     Dates: start: 20210430
  43. PENTHROX [Concomitant]
     Active Substance: METHOXYFLURANE
     Dosage: 3 MILLILITER
     Dates: start: 20210715, end: 20210715
  44. BUSCOPAN [Concomitant]
     Active Substance: BUTYLSCOPOLAMINE BROMIDE
     Indication: PAIN
     Dosage: 10 MILLIGRAM
     Dates: start: 20210304, end: 20210324
  45. THIAMINE. [Concomitant]
     Active Substance: THIAMINE
     Indication: PRODUCT USED FOR UNKNOWN INDICATION
     Dosage: 300 MILLIGRAM
     Route: 042
     Dates: start: 20210319, end: 20210323
  46. CEFEPIME [Concomitant]
     Active Substance: CEFEPIME HYDROCHLORIDE
     Indication: FEBRILE NEUTROPENIA
     Dosage: 2 GRAM
     Dates: start: 20210815
  47. PARACETAMOL [Concomitant]
     Active Substance: ACETAMINOPHEN
     Dosage: 1 GRAM
     Route: 048
     Dates: start: 20210715, end: 20210715
  48. VALACICLOVIR [Concomitant]
     Active Substance: VALACYCLOVIR HYDROCHLORIDE
     Indication: PROPHYLAXIS
     Dosage: 500 MILLIGRAM, QD
     Dates: start: 20210205
  49. ONDANSETRON [Concomitant]
     Active Substance: ONDANSETRON
     Indication: VOMITING
  50. OXYCODONE [Concomitant]
     Active Substance: OXYCODONE
     Indication: PAIN
     Dosage: 5 MILLIGRAM, QD
     Dates: start: 20210214, end: 20210214
  51. METHOXYFLURANE. [Concomitant]
     Active Substance: METHOXYFLURANE
     Indication: SEDATION
     Dosage: 3 MILLILITER
     Dates: start: 20210218, end: 20210218
  52. FAMOTIDINE. [Concomitant]
     Active Substance: FAMOTIDINE
     Indication: GASTROOESOPHAGEAL REFLUX DISEASE
     Dosage: 20 MILLIGRAM
     Dates: start: 20210312
  53. ESOMEPRAZOLE. [Concomitant]
     Active Substance: ESOMEPRAZOLE MAGNESIUM
     Indication: GASTROOESOPHAGEAL REFLUX DISEASE
     Dosage: 20 MILLIGRAM, BID
     Dates: start: 20210322
  54. FLUCONAZOLE. [Concomitant]
     Active Substance: FLUCONAZOLE
     Indication: PROPHYLAXIS
     Dosage: 200 MILLIGRAM, QD
     Dates: start: 20210507, end: 20210721
  55. DEXAMETHASONE. [Suspect]
     Active Substance: DEXAMETHASONE
     Dosage: 8 MILLIGRAM
     Route: 042
  56. CEFEPIME [Concomitant]
     Active Substance: CEFEPIME HYDROCHLORIDE
     Indication: STOMATITIS
     Dosage: 2 GRAM, TID
     Route: 042
     Dates: start: 20210202, end: 20210208
  57. GASTROGEL RANITIDINE [Concomitant]
     Dosage: 15 MILLILITER, QID (PRN)
     Dates: start: 20210218, end: 20210224
  58. OXYCODONE [Concomitant]
     Active Substance: OXYCODONE
     Dosage: UNK, AS NECESSARY (2.5?5MG)
     Dates: start: 20210214, end: 20210324
  59. CLEXANE [Concomitant]
     Active Substance: ENOXAPARIN SODIUM
     Indication: THROMBOSIS
     Dosage: 40 MILLIGRAM, QD
     Dates: start: 20210206, end: 20210319
  60. FLEET ENEMA [Concomitant]
     Active Substance: SODIUM PHOSPHATE, DIBASIC\SODIUM PHOSPHATE, MONOBASIC
     Dosage: UNK
     Dates: start: 20210313, end: 20210313
  61. ENOXAPARIN [Concomitant]
     Active Substance: ENOXAPARIN
     Indication: THROMBOSIS
     Dosage: 20 MILLIGRAM, QD
     Dates: start: 20210320, end: 20210323
  62. DOMPERIDONE [Concomitant]
     Active Substance: DOMPERIDONE
     Indication: VOMITING
  63. THIAMINE. [Concomitant]
     Active Substance: THIAMINE
     Dosage: 100 UNK
     Dates: start: 20210323, end: 20210324
  64. GAVISCON RELIEF [Concomitant]
     Indication: REFLUX GASTRITIS
     Dosage: 20 MILLILITER, TID
     Route: 048
     Dates: start: 20210518
  65. DEXAMETHASONE. [Suspect]
     Active Substance: DEXAMETHASONE
     Indication: ACUTE LYMPHOCYTIC LEUKAEMIA
     Dosage: 8 MILLIGRAM, QD
     Route: 048
     Dates: start: 20210505, end: 20210507
  66. DOXORUBICIN [Suspect]
     Active Substance: DOXORUBICIN
     Dosage: 40 MILLIGRAM
     Route: 042
  67. SULFAMETHOXAZOLE;TRIMETHOPRIM [Concomitant]
     Active Substance: SULFAMETHOXAZOLE\TRIMETHOPRIM
     Indication: PROPHYLAXIS
     Dosage: UNK UNK, BID (800MG/160MG)
     Dates: start: 20210208, end: 20210419
  68. TEMAZEPAM. [Concomitant]
     Active Substance: TEMAZEPAM
     Indication: INSOMNIA
     Dosage: 5 MILLIGRAM, QD (PRN)
     Dates: start: 20210202, end: 20210206
  69. MOVICOL PLAIN [Concomitant]
     Active Substance: POLYETHYLENE GLYCOL 3350\POTASSIUM CHLORIDE\SODIUM BICARBONATE\SODIUM CHLORIDE
     Dosage: UNK, BID (1?2 PACKS)
     Dates: start: 20210218
  70. PICOPREP [Concomitant]
     Active Substance: ANHYDROUS CITRIC ACID\MAGNESIUM OXIDE\SODIUM PICOSULFATE
     Indication: CONSTIPATION
     Dosage: UNK UNK, QD
     Dates: start: 20210214, end: 20210214
  71. LIGNOCAIN [Concomitant]
     Dosage: UNK
     Dates: start: 20210218, end: 20210218
  72. CYCLIZINE [Concomitant]
     Active Substance: CYCLIZINE
     Indication: NAUSEA
     Dosage: UNK UNK, AS NECESSARY (25?50 MG)
     Dates: start: 20210215, end: 20210324
  73. DOMPERIDONE [Concomitant]
     Active Substance: DOMPERIDONE
     Indication: NAUSEA
     Dosage: 10 MILLIGRAM, TID
     Dates: start: 20210316, end: 20210324
  74. DEXAMETHASONE. [Suspect]
     Active Substance: DEXAMETHASONE
     Dosage: 8 MILLIGRAM, QD
     Route: 048
     Dates: start: 20210602, end: 20210604
  75. DOXORUBICIN [Suspect]
     Active Substance: DOXORUBICIN
     Indication: ACUTE LYMPHOCYTIC LEUKAEMIA
     Dosage: UNK (TOTAL DOSE: 120 MG)
     Route: 042
     Dates: start: 20210729
  76. PEG/L?ASPARAGINASE [Suspect]
     Active Substance: PEGASPARGASE
     Dosage: 1300 UNIT
     Route: 065
  77. GASTROGEL RANITIDINE [Concomitant]
     Indication: EPIGASTRIC DISCOMFORT
     Dosage: 20 MILLILITER, QD
     Dates: start: 20210220, end: 20210220
  78. LIGNOCAIN [Concomitant]
     Dosage: UNK
     Route: 058
     Dates: start: 20210715, end: 20210715
  79. PANTOPRAZOLE [Concomitant]
     Active Substance: PANTOPRAZOLE
     Dosage: 40 MILLIGRAM, BID
     Dates: start: 20210303, end: 20210324
  80. POSACONAZOLE [Concomitant]
     Active Substance: POSACONAZOLE
     Indication: PROPHYLAXIS
     Dosage: 300 MILLIGRAM, QD
     Dates: start: 20210306, end: 20210310
  81. METOCLOPRAMIDE. [Concomitant]
     Active Substance: METOCLOPRAMIDE
     Indication: NAUSEA
     Dosage: 10 MILLIGRAM, TID
     Dates: start: 20210315

REACTIONS (1)
  - Stomatitis [Not Recovered/Not Resolved]

NARRATIVE: CASE EVENT DATE: 20210815
